FAERS Safety Report 6491024-1 (Version None)
Quarter: 2009Q4

REPORT INFORMATION
  Report Type: 
  Country: None (occurrence: None)
  Receive Date: 20091207
  Receipt Date: 20091124
  Transmission Date: 20100525
  Serious: Yes (Hospitalization)
  Sender: FDA-Public Use
  Company Number: 2009-04806

PATIENT
  Age: 72 Year
  Sex: Male

DRUGS (4)
  1. VELCADE [Suspect]
     Indication: MULTIPLE MYELOMA
     Dosage: 2.6 MG, INTRAVENOUS
     Route: 042
     Dates: start: 20080713, end: 20091109
  2. DEXAMETHASONE SODIUM PHOSPHATE [Concomitant]
  3. ACETYLSALICYLIC (ACETYSALICYLIC ACID) [Concomitant]
  4. CORDARONE [Concomitant]

REACTIONS (2)
  - CONSTIPATION [None]
  - INTESTINAL INFARCTION [None]
